FAERS Safety Report 6910814 (Version 2)
Quarter: 2012Q4

REPORT INFORMATION
  Report Type: Report from Study
  Country: ES (occurrence: ES)
  Receive Date: 20090217
  Receipt Date: 20120914
  Transmission Date: 20130627
  Serious: Yes (Hospitalization, Other)
  Sender: FDA-Public Use
  Company Number: ES-JNJFOC-20090201997

PATIENT
  Age: 69 Year
  Sex: Female

DRUGS (8)
  1. REMICADE [Suspect]
     Indication: RHEUMATOID ARTHRITIS
     Route: 042
     Dates: start: 20010410, end: 20020410
  2. REMICADE [Suspect]
     Indication: RHEUMATOID ARTHRITIS
     Dosage: ^dose 3^
     Route: 042
     Dates: start: 20000509
  3. MTX [Concomitant]
  4. CORTICOID [Concomitant]
  5. AINES [Concomitant]
  6. OMEPRAZOLE [Concomitant]
  7. BIPHOSPHONATE [Concomitant]
  8. ACFOL [Concomitant]

REACTIONS (1)
  - Lung adenocarcinoma [Not Recovered/Not Resolved]
